FAERS Safety Report 15434780 (Version 1)
Quarter: 2018Q3

REPORT INFORMATION
  Report Type: Spontaneous
  Country: IR (occurrence: IR)
  Receive Date: 20180927
  Receipt Date: 20180927
  Transmission Date: 20181010
  Serious: Yes (Other)
  Sender: FDA-Public Use
  Company Number: IR-PFIZER INC-2018320994

PATIENT
  Age: 13 Year
  Sex: Male

DRUGS (4)
  1. RANITIDINE. [Concomitant]
     Active Substance: RANITIDINE
     Dosage: UNK, DAILY
  2. CLEMASTINE [Concomitant]
     Active Substance: CLEMASTINE
     Dosage: UNK, DAILY
  3. ANTITHYMOCYTE IMMUNOGLOBULIN [Suspect]
     Active Substance: THYMOCYTE IMMUNE GLOBULIN NOS
     Indication: APLASTIC ANAEMIA
     Dosage: 1200 MG, UNK (4 DOSES)
     Route: 042
  4. HYDROCORTISONE SODIUM SUCCINATE [Suspect]
     Active Substance: HYDROCORTISONE SODIUM SUCCINATE
     Dosage: UNK, DAILY

REACTIONS (1)
  - Serum sickness [Recovered/Resolved]
